FAERS Safety Report 8095577-1 (Version None)
Quarter: 2012Q1

REPORT INFORMATION
  Report Type: 
  Country: None (occurrence: None)
  Receive Date: 20120129
  Receipt Date: 20111215
  Transmission Date: 20120608
  Serious: No
  Sender: FDA-Public Use
  Company Number: US-ABBOTT-11P-163-0883835-00

PATIENT
  Age: 67 Year
  Sex: Male

DRUGS (14)
  1. NEURONTIN [Concomitant]
     Indication: PARAESTHESIA
  2. HUMIRA [Suspect]
     Indication: CROHN'S DISEASE
     Dosage: DAY 1
     Dates: start: 20111212
  3. PROGRAF [Concomitant]
     Indication: PRODUCT USED FOR UNKNOWN INDICATION
  4. ANTI-REJECTION MEDICATIONS [Concomitant]
     Indication: RENAL TRANSPLANT
  5. NEURONTIN [Concomitant]
  6. COUMADIN [Concomitant]
     Indication: PRODUCT USED FOR UNKNOWN INDICATION
     Dosage: #2 ON TUESDAY-SUNDAYS, #1 ON MONDAYS
  7. PREDNISONE TAB [Concomitant]
     Indication: INFLAMMATION
     Route: 048
  8. CALCIUM [Concomitant]
     Indication: VITAMIN SUPPLEMENTATION
  9. SODIUM BICARBONATE [Concomitant]
     Indication: PRODUCT USED FOR UNKNOWN INDICATION
  10. MULTI-VITAMIN [Concomitant]
     Indication: VITAMIN SUPPLEMENTATION
  11. CELECEPT [Concomitant]
     Indication: PRODUCT USED FOR UNKNOWN INDICATION
  12. PROTONIX [Concomitant]
     Indication: GASTROOESOPHAGEAL REFLUX DISEASE
  13. VITAMIN B COMPLEX CAP [Concomitant]
     Indication: PRODUCT USED FOR UNKNOWN INDICATION
  14. VITAMIN D [Concomitant]
     Indication: PRODUCT USED FOR UNKNOWN INDICATION

REACTIONS (2)
  - OEDEMA PERIPHERAL [None]
  - JOINT STIFFNESS [None]
